FAERS Safety Report 24789020 (Version 2)
Quarter: 2025Q3

REPORT INFORMATION
  Report Type: Spontaneous
  Country: EU (occurrence: EU)
  Receive Date: 20241230
  Receipt Date: 20250802
  Transmission Date: 20251020
  Serious: Yes (Other)
  Sender: ALEXION PHARMACEUTICALS
  Company Number: None

PATIENT
  Age: 65 Year
  Sex: Male

DRUGS (1)
  1. ROSUVASTATIN [Suspect]
     Active Substance: ROSUVASTATIN
     Indication: Hypercholesterolaemia
     Dosage: 5 MILLIGRAM, 1/DAY
     Dates: start: 20241122, end: 20241212

REACTIONS (2)
  - Myalgia [Recovered/Resolved]
  - Choluria [Recovered/Resolved]

NARRATIVE: CASE EVENT DATE: 20241213
